FAERS Safety Report 10309879 (Version 1)
Quarter: 2014Q3

REPORT INFORMATION
  Report Type: Spontaneous
  Country: US (occurrence: US)
  Receive Date: 20140717
  Receipt Date: 20140717
  Transmission Date: 20150326
  Serious: No
  Sender: FDA-Public Use
  Company Number: US-SHIRE-US201403949

PATIENT
  Age: 11 Year
  Sex: Male
  Weight: 31.29 kg

DRUGS (11)
  1. INTUNIV [Suspect]
     Active Substance: GUANFACINE HYDROCHLORIDE
     Dosage: 2 MG, UNKNOWN
     Route: 048
     Dates: start: 201310
  2. MULTIVITAMINUM [Concomitant]
     Indication: VITAMIN SUPPLEMENTATION
     Dosage: UNK, UNKNOWN
     Route: 065
  3. PATADAY [Concomitant]
     Active Substance: OLOPATADINE HYDROCHLORIDE
     Indication: HYPERSENSITIVITY
     Dosage: (0.2 % 2.5 ML), AS REQ^D
     Route: 047
     Dates: start: 2010
  4. INTUNIV [Suspect]
     Active Substance: GUANFACINE HYDROCHLORIDE
     Indication: ATTENTION DEFICIT/HYPERACTIVITY DISORDER
     Dosage: 1 MG, 1X/DAY:QD
     Route: 048
     Dates: start: 201310, end: 201310
  5. VYVANSE [Suspect]
     Active Substance: LISDEXAMFETAMINE DIMESYLATE
     Dosage: 30 MG, 1X/DAY:QD
     Route: 048
     Dates: start: 2009, end: 201111
  6. VYVANSE [Suspect]
     Active Substance: LISDEXAMFETAMINE DIMESYLATE
     Dosage: 40 MG, 1X/DAY:QD
     Route: 048
     Dates: start: 201111, end: 2012
  7. ZYRTEC [Concomitant]
     Active Substance: CETIRIZINE HYDROCHLORIDE
     Indication: HYPERSENSITIVITY
     Dosage: 1 DF, 1X/DAY:QD (EVERY NIGHT)
     Route: 065
     Dates: start: 2007
  8. FISH OIL [Concomitant]
     Active Substance: FISH OIL
     Indication: SUPPLEMENTATION THERAPY
     Dosage: UNK, UNKNOWN
     Route: 065
  9. VYVANSE [Suspect]
     Active Substance: LISDEXAMFETAMINE DIMESYLATE
     Indication: ATTENTION DEFICIT/HYPERACTIVITY DISORDER
     Dosage: 50 MG, 1X/DAY:QD
     Route: 048
     Dates: start: 201308
  10. VYVANSE [Suspect]
     Active Substance: LISDEXAMFETAMINE DIMESYLATE
     Dosage: 50 MG, 1X/DAY:QD
     Route: 048
     Dates: start: 2012, end: 2013
  11. EPIPEN [Concomitant]
     Active Substance: EPINEPHRINE
     Indication: HYPERSENSITIVITY
     Dosage: UNK, AS REQ^D
     Route: 065
     Dates: start: 2013

REACTIONS (2)
  - Somnolence [Recovered/Resolved]
  - Limb discomfort [Recovered/Resolved]

NARRATIVE: CASE EVENT DATE: 201310
